FAERS Safety Report 16269488 (Version 1)
Quarter: 2019Q2

REPORT INFORMATION
  Report Type: Spontaneous
  Country: US (occurrence: US)
  Receive Date: 20190329
  Receipt Date: 20190329
  Transmission Date: 20190711
  Serious: Yes (Death, Hospitalization)
  Sender: FDA-Public Use
  Company Number: None

PATIENT
  Age: 77 Year
  Sex: Female
  Weight: 65.09 kg

DRUGS (2)
  1. ETOPOSIDE (VP - 16) [Suspect]
     Active Substance: ETOPOSIDE
     Dates: end: 20181228
  2. CARBOPLATIN (241240) [Suspect]
     Active Substance: CARBOPLATIN
     Dates: end: 20181226

REACTIONS (4)
  - Hypophagia [None]
  - Weight decreased [None]
  - Movement disorder [None]
  - Diarrhoea [None]

NARRATIVE: CASE EVENT DATE: 20190319
